FAERS Safety Report 4791048-6 (Version None)
Quarter: 2005Q4

REPORT INFORMATION
  Report Type: 
  Country: None (occurrence: None)
  Receive Date: 20051007
  Receipt Date: 20051004
  Transmission Date: 20060501
  Serious: Yes (Death)
  Sender: FDA-Public Use
  Company Number: US-JNJFOC-20050902495

PATIENT
  Age: 15 Year
  Sex: Female

DRUGS (3)
  1. DIPHENHYDRAMINE HCL [Suspect]
     Indication: SUICIDE ATTEMPT
     Route: 048
  2. CITALOPRAM [Suspect]
     Indication: SUICIDE ATTEMPT
     Route: 048
  3. MILK OF MAGNESIA TAB [Suspect]
     Indication: SUICIDE ATTEMPT
     Dosage: A BOTTLE
     Route: 048

REACTIONS (3)
  - COMPLETED SUICIDE [None]
  - CONVULSION [None]
  - DRUG TOXICITY [None]
